FAERS Safety Report 18512830 (Version 1)
Quarter: 2020Q4

REPORT INFORMATION
  Report Type: Spontaneous
  Country: FR (occurrence: FR)
  Receive Date: 20201117
  Receipt Date: 20201117
  Transmission Date: 20210114
  Serious: Yes (Hospitalization)
  Sender: FDA-Public Use
  Company Number: FR-MYLANLABS-2020M1094475

PATIENT
  Age: 66 Year
  Sex: Male

DRUGS (3)
  1. GENTAMICINE                        /00047101/ [Suspect]
     Active Substance: GENTAMICIN
     Indication: INTERVERTEBRAL DISCITIS
     Dosage: 500 MILLIGRAM, QD
     Route: 042
     Dates: start: 20171223, end: 20171224
  2. CLOXACILLINE /00012002/ [Suspect]
     Active Substance: CLOXACILLIN SODIUM
     Indication: INTERVERTEBRAL DISCITIS
     Dosage: UNK
     Route: 042
     Dates: start: 20171222, end: 20180124
  3. VANCOMYCIN [Suspect]
     Active Substance: VANCOMYCIN
     Indication: INTERVERTEBRAL DISCITIS
     Dosage: 1 GRAM
     Route: 042
     Dates: start: 20171223, end: 20171223

REACTIONS (2)
  - Encephalopathy [Recovering/Resolving]
  - Renal failure [Recovering/Resolving]

NARRATIVE: CASE EVENT DATE: 201712
